FAERS Safety Report 16237842 (Version 2)
Quarter: 2020Q1

REPORT INFORMATION
  Report Type: Report from Study
  Country: JP (occurrence: JP)
  Receive Date: 20190425
  Receipt Date: 20200214
  Transmission Date: 20200409
  Serious: Yes (Other)
  Sender: FDA-Public Use
  Company Number: JP-JNJFOC-20190436370

PATIENT

DRUGS (4)
  1. METHOTREXATE. [Concomitant]
     Active Substance: METHOTREXATE
     Route: 065
  2. PREDNISOLONE. [Concomitant]
     Active Substance: PREDNISOLONE
     Route: 065
  3. SIMPONI [Suspect]
     Active Substance: GOLIMUMAB
     Indication: RHEUMATOID ARTHRITIS
     Route: 058
  4. REMICADE [Suspect]
     Active Substance: INFLIXIMAB
     Indication: PSORIATIC ARTHROPATHY
     Route: 042

REACTIONS (10)
  - Drug ineffective [Unknown]
  - Lung disorder [Unknown]
  - Blood disorder [Unknown]
  - Cardiovascular disorder [Unknown]
  - Renal disorder [Unknown]
  - Adverse drug reaction [Unknown]
  - Infection [Unknown]
  - Skin reaction [Unknown]
  - Neoplasm malignant [Unknown]
  - Adverse event [Unknown]
